FAERS Safety Report 14362465 (Version 1)
Quarter: 2018Q1

REPORT INFORMATION
  Report Type: Spontaneous
  Country: US (occurrence: US)
  Receive Date: 20180105
  Receipt Date: 20180105
  Transmission Date: 20180509
  Serious: Yes (Death)
  Sender: FDA-Public Use
  Company Number: None

PATIENT
  Age: 62 Year
  Sex: Male

DRUGS (1)
  1. TACROLIMUS 0.5MG CAP SANDOZ [Suspect]
     Active Substance: TACROLIMUS
     Indication: ACUTE MYELOID LEUKAEMIA
     Dosage: 1MG AM PO??0.5MG PM PO
     Route: 048
     Dates: start: 20170316

REACTIONS (1)
  - Death [None]

NARRATIVE: CASE EVENT DATE: 20171222
